FAERS Safety Report 4570320-9 (Version None)
Quarter: 2005Q1

REPORT INFORMATION
  Report Type: 
  Country: None (occurrence: None)
  Receive Date: 20050204
  Receipt Date: 20040507
  Transmission Date: 20050727
  Serious: Yes (Death)
  Sender: FDA-Public Use
  Company Number: GB-AMGEN-US076882

PATIENT
  Age: 52 Year
  Sex: Female
  Weight: 87 kg

DRUGS (5)
  1. ENBREL [Suspect]
     Indication: RHEUMATOID ARTHRITIS
     Route: 058
     Dates: start: 20020101, end: 20040430
  2. WARFARIN SODIUM [Concomitant]
     Dates: start: 20010101
  3. VIOXX [Concomitant]
     Route: 048
     Dates: start: 20010101
  4. LANSOPRAZOLE [Concomitant]
     Route: 048
     Dates: start: 20010101
  5. OXYBUTYNIN [Concomitant]
     Route: 048
     Dates: start: 20020101

REACTIONS (7)
  - HIP SURGERY [None]
  - LOWER RESPIRATORY TRACT INFECTION [None]
  - LYMPHOMA [None]
  - PHARYNGOLARYNGEAL PAIN [None]
  - PNEUMONIA [None]
  - PURULENT PERICARDITIS [None]
  - STAPHYLOCOCCAL SEPSIS [None]
